FAERS Safety Report 4939255-3 (Version None)
Quarter: 2006Q1

REPORT INFORMATION
  Report Type: 
  Country: None (occurrence: None)
  Receive Date: 20060309
  Receipt Date: 20060309
  Transmission Date: 20060701
  Serious: Yes (Other)
  Sender: FDA-Public Use
  Company Number: None

PATIENT
  Age: 55 Year
  Sex: Female
  Weight: 63.5036 kg

DRUGS (4)
  1. NITRO-DUR [Suspect]
     Indication: ANGINA PECTORIS
     Dosage: 0.4MG/HR DAILY  PATCH
     Dates: start: 19970301
  2. NITRO-DUR [Suspect]
     Indication: CORONARY ARTERY DISEASE
     Dosage: 0.4MG/HR DAILY  PATCH
     Dates: start: 19970301
  3. NITROGLYCERIN [Suspect]
     Indication: ANGINA PECTORIS
     Dosage: 0.4MG/HR  DAILY  TRANSDERMALLY
     Route: 062
     Dates: start: 20060201
  4. NITROGLYCERIN [Suspect]
     Indication: CORONARY ARTERY DISEASE
     Dosage: 0.4MG/HR  DAILY  TRANSDERMALLY
     Route: 062
     Dates: start: 20060201

REACTIONS (2)
  - APPLICATION SITE HYPERSENSITIVITY [None]
  - DERMATITIS CONTACT [None]
